FAERS Safety Report 14649945 (Version 1)
Quarter: 2018Q1

REPORT INFORMATION
  Report Type: Spontaneous
  Country: US (occurrence: US)
  Receive Date: 20180316
  Receipt Date: 20180316
  Transmission Date: 20180509
  Serious: Yes (Hospitalization, Other)
  Sender: FDA-Public Use
  Company Number: US-ASTRAZENECA-2008BM09191

PATIENT
  Age: 632 Month
  Sex: Male

DRUGS (15)
  1. NEURONTIN [Concomitant]
     Active Substance: GABAPENTIN
     Dosage: 500 MG, UNK
     Dates: end: 200804
  2. BYETTA [Suspect]
     Active Substance: EXENATIDE
     Indication: TYPE 2 DIABETES MELLITUS
     Route: 058
     Dates: end: 200805
  3. SIMVASTATIN. [Concomitant]
     Active Substance: SIMVASTATIN
     Indication: BLOOD CHOLESTEROL ABNORMAL
     Dosage: 40 MG, QD
  4. TOPAMAX [Concomitant]
     Active Substance: TOPIRAMATE
     Indication: APPETITE DISORDER
  5. DILAUDID [Concomitant]
     Active Substance: HYDROMORPHONE HYDROCHLORIDE
     Indication: PAIN
     Dosage: 4.0MG INTERMITTENT
     Dates: end: 200804
  6. KADIAN [Concomitant]
     Active Substance: MORPHINE SULFATE
     Indication: NECK PAIN
  7. AVODART [Concomitant]
     Active Substance: DUTASTERIDE
     Indication: BENIGN PROSTATIC HYPERPLASIA
  8. BYETTA [Suspect]
     Active Substance: EXENATIDE
     Indication: TYPE 2 DIABETES MELLITUS
     Route: 058
     Dates: start: 2005
  9. METFORMIN [Concomitant]
     Active Substance: METFORMIN HYDROCHLORIDE
     Indication: TYPE 2 DIABETES MELLITUS
  10. FLOMAX [Concomitant]
     Active Substance: TAMSULOSIN HYDROCHLORIDE
     Indication: BENIGN PROSTATIC HYPERPLASIA
  11. DILAUDID [Concomitant]
     Active Substance: HYDROMORPHONE HYDROCHLORIDE
     Indication: PAIN
     Dates: end: 200804
  12. NAPROXEN. [Concomitant]
     Active Substance: NAPROXEN
     Indication: PAIN
     Dosage: 500 MG, BID
     Dates: start: 200803
  13. BETAMETHASONE DIPROPIONATE. [Concomitant]
     Active Substance: BETAMETHASONE DIPROPIONATE
     Dosage: UNK
  14. ALLOPURINOL. [Concomitant]
     Active Substance: ALLOPURINOL
     Indication: GOUT
  15. ALEVE [Concomitant]
     Active Substance: NAPROXEN SODIUM
     Dosage: 200 MG, PRN200.0MG AS REQUIRED
     Dates: end: 200804

REACTIONS (10)
  - Musculoskeletal pain [Unknown]
  - Skin discolouration [Recovering/Resolving]
  - Drug ineffective [Unknown]
  - Rotator cuff syndrome [Recovering/Resolving]
  - Skin haemorrhage [Recovering/Resolving]
  - Blood glucose increased [Unknown]
  - Skin exfoliation [Recovering/Resolving]
  - Skin disorder [Recovering/Resolving]
  - Weight decreased [Unknown]
  - Injection site pain [Unknown]

NARRATIVE: CASE EVENT DATE: 200805
